FAERS Safety Report 4954241-5 (Version None)
Quarter: 2006Q1

REPORT INFORMATION
  Report Type: 
  Country: None (occurrence: None)
  Receive Date: 20060327
  Receipt Date: 20051122
  Transmission Date: 20060701
  Serious: Yes (Hospitalization)
  Sender: FDA-Public Use
  Company Number: US-MERCK-0511USA04048

PATIENT
  Age: 41 Year
  Sex: Female

DRUGS (2)
  1. VIOXX [Suspect]
     Indication: CHEST PAIN
     Route: 048
     Dates: start: 19991201, end: 20040930
  2. TOPAMAX [Suspect]
     Route: 065

REACTIONS (19)
  - ANXIETY [None]
  - ARTHRALGIA [None]
  - AXILLARY PAIN [None]
  - BACK PAIN [None]
  - CHEST PAIN [None]
  - CLAVICLE FRACTURE [None]
  - DIARRHOEA [None]
  - DYSFUNCTIONAL UTERINE BLEEDING [None]
  - GASTROOESOPHAGEAL REFLUX DISEASE [None]
  - HYPERTENSION [None]
  - HYPOAESTHESIA [None]
  - INSOMNIA [None]
  - MUSCLE SPASMS [None]
  - NAUSEA [None]
  - NECK INJURY [None]
  - PAIN IN EXTREMITY [None]
  - PULMONARY EMBOLISM [None]
  - RIB FRACTURE [None]
  - SHOULDER PAIN [None]
